FAERS Safety Report 12566842 (Version 1)
Quarter: 2016Q3

REPORT INFORMATION
  Report Type: Spontaneous
  Country: CN (occurrence: CN)
  Receive Date: 20160718
  Receipt Date: 20160718
  Transmission Date: 20161109
  Serious: Yes (Other)
  Sender: FDA-Public Use
  Company Number: CN-JNJFOC-20160703696

PATIENT
  Age: 12 Month
  Sex: Male
  Weight: 12 kg

DRUGS (3)
  1. PREPARATION H COOLING GEL [Suspect]
     Active Substance: PHENYLEPHRINE HYDROCHLORIDE\WITCH HAZEL
     Indication: PYREXIA
     Route: 065
     Dates: start: 20151216, end: 20151216
  2. MOTRIN [Suspect]
     Active Substance: IBUPROFEN
     Route: 048
  3. MOTRIN [Suspect]
     Active Substance: IBUPROFEN
     Indication: PYREXIA
     Route: 048
     Dates: start: 20151216, end: 20151216

REACTIONS (2)
  - Rubella [Recovered/Resolved]
  - Urticaria [Recovered/Resolved]

NARRATIVE: CASE EVENT DATE: 20151216
